FAERS Safety Report 5135917-6 (Version None)
Quarter: 2006Q4

REPORT INFORMATION
  Report Type: 
  Country: None (occurrence: None)
  Receive Date: 20061020
  Receipt Date: 20061010
  Transmission Date: 20070319
  Serious: Yes (Other)
  Sender: FDA-Public Use
  Company Number: 148509ISR

PATIENT
  Age: 72 Year
  Sex: Female

DRUGS (2)
  1. PREDNISOLONE [Suspect]
     Dates: start: 20060830
  2. CLARITHROMYCIN [Suspect]
     Dosage: 500 MG (250 MG, 2 IN 1 D)
     Dates: end: 20060830

REACTIONS (1)
  - ARRHYTHMIA [None]
